FAERS Safety Report 5858201-1 (Version None)
Quarter: 2008Q3

REPORT INFORMATION
  Report Type: 
  Country: None (occurrence: None)
  Receive Date: 20080826
  Receipt Date: 20080822
  Transmission Date: 20090109
  Serious: Yes (Hospitalization)
  Sender: FDA-Public Use
  Company Number: A0730993A

PATIENT
  Age: 56 Year
  Sex: Male
  Weight: 118.2 kg

DRUGS (3)
  1. AVANDIA [Suspect]
     Indication: TYPE 2 DIABETES MELLITUS
     Dosage: 8MG PER DAY
     Route: 048
     Dates: start: 20060101, end: 20070101
  2. LOVAZA [Concomitant]
  3. ASPIRIN [Concomitant]

REACTIONS (5)
  - ANEURYSM [None]
  - CARDIAC FAILURE CONGESTIVE [None]
  - OEDEMA [None]
  - PERIPHERAL VASCULAR DISORDER [None]
  - THROMBOSIS [None]
